FAERS Safety Report 9522876 (Version 1)
Quarter: 2013Q3

REPORT INFORMATION
  Report Type: Spontaneous
  Country: US (occurrence: US)
  Receive Date: 20130913
  Receipt Date: 20130913
  Transmission Date: 20140515
  Serious: Yes (Other)
  Sender: FDA-Public Use
  Company Number: US-TEVA-432169USA

PATIENT
  Age: 17 Year
  Sex: Female
  Weight: 85.81 kg

DRUGS (1)
  1. PARAGARD 380A [Suspect]
     Indication: CONTRACEPTION
     Dates: start: 20130909, end: 20130909

REACTIONS (2)
  - Device dislocation [Recovered/Resolved]
  - Pain [Recovered/Resolved]
